FAERS Safety Report 16210341 (Version 3)
Quarter: 2019Q4

REPORT INFORMATION
  Report Type: Spontaneous
  Country: US (occurrence: US)
  Receive Date: 20190418
  Receipt Date: 20191101
  Transmission Date: 20200122
  Serious: Yes (Other)
  Sender: FDA-Public Use
  Company Number: US-ASTRAZENECA-2019SE09783

PATIENT
  Age: 47 Year
  Sex: Female
  Weight: 85.7 kg

DRUGS (27)
  1. LORATADINE. [Concomitant]
     Active Substance: LORATADINE
  2. MELOXICAM. [Concomitant]
     Active Substance: MELOXICAM
  3. PRILOSEC [Suspect]
     Active Substance: OMEPRAZOLE MAGNESIUM
     Indication: GASTROOESOPHAGEAL REFLUX DISEASE
     Route: 048
  4. PRILOSEC [Suspect]
     Active Substance: OMEPRAZOLE MAGNESIUM
     Indication: HERNIA REPAIR
     Route: 065
     Dates: start: 20130415
  5. NEXIUM [Suspect]
     Active Substance: ESOMEPRAZOLE MAGNESIUM
     Indication: GASTROOESOPHAGEAL REFLUX DISEASE
     Route: 048
  6. NEXIUM [Suspect]
     Active Substance: ESOMEPRAZOLE MAGNESIUM
     Indication: GASTROOESOPHAGEAL REFLUX DISEASE
     Route: 048
  7. PRILOSEC [Suspect]
     Active Substance: OMEPRAZOLE MAGNESIUM
     Indication: HERNIA REPAIR
     Route: 048
  8. PRILOSEC [Suspect]
     Active Substance: OMEPRAZOLE MAGNESIUM
     Indication: GASTROOESOPHAGEAL REFLUX DISEASE
     Route: 065
     Dates: start: 20130415
  9. PREVACID [Suspect]
     Active Substance: LANSOPRAZOLE
     Indication: GASTROOESOPHAGEAL REFLUX DISEASE
     Route: 065
  10. SERTRALINE [Concomitant]
     Active Substance: SERTRALINE HYDROCHLORIDE
  11. PROMETHAZINE [Concomitant]
     Active Substance: PROMETHAZINE HYDROCHLORIDE
  12. PREDNISONE. [Concomitant]
     Active Substance: PREDNISONE
  13. NEXIUM [Suspect]
     Active Substance: ESOMEPRAZOLE MAGNESIUM
     Indication: HERNIA REPAIR
     Route: 048
  14. PREVACID [Suspect]
     Active Substance: LANSOPRAZOLE
     Indication: HERNIA REPAIR
     Route: 065
  15. MAALOX ANTACID [Concomitant]
     Active Substance: ALUMINUM HYDROXIDE\DIMETHICONE\MAGNESIUM HYDROXIDE
  16. AMOXIL [Concomitant]
     Active Substance: AMOXICILLIN
  17. PRILOSEC [Suspect]
     Active Substance: OMEPRAZOLE MAGNESIUM
     Indication: GASTROOESOPHAGEAL REFLUX DISEASE
     Route: 048
     Dates: start: 2010
  18. RANITIDINE. [Concomitant]
     Active Substance: RANITIDINE
  19. PRILOSEC [Suspect]
     Active Substance: OMEPRAZOLE MAGNESIUM
     Indication: HERNIA REPAIR
     Route: 048
     Dates: start: 2010
  20. PRILOSEC [Suspect]
     Active Substance: OMEPRAZOLE MAGNESIUM
     Indication: GASTROOESOPHAGEAL REFLUX DISEASE
     Route: 048
     Dates: start: 20131101
  21. DOXYCYCLINE. [Concomitant]
     Active Substance: DOXYCYCLINE
  22. PRILOSEC [Suspect]
     Active Substance: OMEPRAZOLE MAGNESIUM
     Indication: HERNIA REPAIR
     Route: 048
     Dates: start: 20131101
  23. IBUPROFEN. [Concomitant]
     Active Substance: IBUPROFEN
  24. PAROXETINE. [Concomitant]
     Active Substance: PAROXETINE
  25. HYDROXYZINE [Concomitant]
     Active Substance: HYDROXYZINE HYDROCHLORIDE
  26. DOXYCYCLINE. [Concomitant]
     Active Substance: DOXYCYCLINE
  27. NEXIUM [Suspect]
     Active Substance: ESOMEPRAZOLE MAGNESIUM
     Indication: HERNIA REPAIR
     Route: 048

REACTIONS (4)
  - Rebound acid hypersecretion [Unknown]
  - Renal failure [Not Recovered/Not Resolved]
  - Renal injury [Unknown]
  - Tubulointerstitial nephritis [Not Recovered/Not Resolved]

NARRATIVE: CASE EVENT DATE: 2010
